FAERS Safety Report 4338234-7 (Version None)
Quarter: 2004Q2

REPORT INFORMATION
  Report Type: 
  Country: None (occurrence: None)
  Receive Date: 20040409
  Receipt Date: 20040329
  Transmission Date: 20050107
  Serious: Yes (Hospitalization)
  Sender: FDA-Public Use
  Company Number: 04P-056-0251161-00

PATIENT
  Age: 20 Year
  Sex: Male

DRUGS (3)
  1. DEPAKOTE [Suspect]
     Dosage: 1000 MG, 1 IN 1 D, ORAL
     Route: 048
     Dates: start: 20031111, end: 20031204
  2. AMISULPRIDE [Concomitant]
  3. LOXAPINE SUCCINATE [Suspect]
     Dosage: 200 MG, 1 IN 1D, ORAL
     Route: 048
     Dates: start: 20031128, end: 20031204

REACTIONS (5)
  - HAEMOPTYSIS [None]
  - PARANOIA [None]
  - PHLEBITIS [None]
  - PROTEIN C DECREASED [None]
  - PULMONARY EMBOLISM [None]
